FAERS Safety Report 7920894-2 (Version None)
Quarter: 2011Q4

REPORT INFORMATION
  Report Type: 
  Country: None (occurrence: None)
  Receive Date: 20111117
  Receipt Date: 20110921
  Transmission Date: 20120403
  Serious: No
  Sender: FDA-Public Use
  Company Number: US-GLAXOSMITHKLINE-A0945862A

PATIENT
  Sex: Male
  Weight: 81.4 kg

DRUGS (5)
  1. EXCEDRIN (MIGRAINE) [Concomitant]
  2. IMODIUM [Concomitant]
  3. VOTRIENT [Suspect]
     Indication: RENAL CANCER
     Dosage: 800MG IN THE MORNING
     Route: 048
  4. LISINOPRIL [Concomitant]
  5. METOCLOPRAMIDE [Concomitant]

REACTIONS (4)
  - HYPERTENSION [None]
  - FATIGUE [None]
  - NAUSEA [None]
  - DIARRHOEA [None]
